FAERS Safety Report 5453557-6 (Version None)
Quarter: 2007Q3

REPORT INFORMATION
  Report Type: 
  Country: None (occurrence: None)
  Receive Date: 20070913
  Receipt Date: 20070905
  Transmission Date: 20080115
  Serious: Yes (Life-Threatening)
  Sender: FDA-Public Use
  Company Number: 2007JP004203

PATIENT
  Sex: Male

DRUGS (5)
  1. TACROLIMUS [Suspect]
     Dosage: TRANSPLACENTAL
     Route: 064
  2. MYCOPHENOLATE MOFETIL [Suspect]
     Dosage: TRANSPLACENTAL
  3. PREDNISOLONE [Suspect]
     Dosage: TRANSPLACENTAL
  4. CALCITRIOL [Suspect]
     Dosage: TRANSPLACENTAL
  5. MAGNESIUM SULFATE [Suspect]
     Dosage: TRANSPLACENTAL

REACTIONS (7)
  - CLEFT UVULA [None]
  - CONGENITAL AURAL FISTULA [None]
  - CONGENITAL CHOROID PLEXUS CYST [None]
  - HYPOCALCAEMIA [None]
  - MATERNAL DRUGS AFFECTING FOETUS [None]
  - MULTIPLE CONGENITAL ABNORMALITIES [None]
  - RESPIRATORY DISTRESS [None]
